FAERS Safety Report 4377332-9 (Version None)
Quarter: 2004Q2

REPORT INFORMATION
  Report Type: 
  Country: None (occurrence: None)
  Receive Date: 20040614
  Receipt Date: 20040614
  Transmission Date: 20050107
  Serious: Yes (Life-Threatening, Disabling, Other)
  Sender: FDA-Public Use
  Company Number: None

PATIENT
  Age: 52 Year
  Sex: Female
  Weight: 70.7611 kg

DRUGS (2)
  1. INTERFERON SHERRING PLOUGH [Suspect]
     Indication: HEPATITIS C
     Dosage: FORGET 3X WEEK INTRAMUSCULAR
     Route: 030
     Dates: start: 19980110, end: 19980310
  2. RUBETRON/INTERFER SHERRING PLOUGH [Suspect]
     Indication: HEPATITIS C
     Dosage: FORGET DAILY/3X W OTHER
     Route: 050
     Dates: start: 19990110, end: 19990610

REACTIONS (4)
  - DRUG INEFFECTIVE [None]
  - HYPERTHYROIDISM [None]
  - HYPOTHYROIDISM POSTOPERATIVE [None]
  - PARKINSON'S DISEASE [None]
